FAERS Safety Report 7973119-6 (Version None)
Quarter: 2011Q4

REPORT INFORMATION
  Report Type: 
  Country: None (occurrence: None)
  Receive Date: 20111213
  Receipt Date: 20111205
  Transmission Date: 20120403
  Serious: Yes (Other)
  Sender: FDA-Public Use
  Company Number: JP-ASTELLAS-2011JP009063

PATIENT
  Sex: Male

DRUGS (5)
  1. PROGRAF [Suspect]
     Route: 065
  2. PROGRAF [Suspect]
     Route: 065
  3. ETOPOSIDE [Concomitant]
     Indication: CHEMOTHERAPY
     Route: 065
  4. IFOSFAMIDE [Concomitant]
     Indication: CHEMOTHERAPY
     Route: 065
  5. IRINOTECAN HCL [Concomitant]
     Indication: CHEMOTHERAPY
     Dosage: UNK
     Route: 065

REACTIONS (2)
  - GRAFT VERSUS HOST DISEASE [None]
  - DRUG INEFFECTIVE [None]
